FAERS Safety Report 6085407-1 (Version None)
Quarter: 2009Q1

REPORT INFORMATION
  Report Type: 
  Country: None (occurrence: None)
  Receive Date: 20090220
  Receipt Date: 20090212
  Transmission Date: 20090719
  Serious: Yes (Other)
  Sender: FDA-Public Use
  Company Number: GB-TEVA-185542ISR

PATIENT

DRUGS (1)
  1. GABAPENTIN [Suspect]

REACTIONS (3)
  - ANAPHYLACTIC REACTION [None]
  - LIP SWELLING [None]
  - OEDEMA [None]
